FAERS Safety Report 4511369-1 (Version None)
Quarter: 2004Q4

REPORT INFORMATION
  Report Type: 
  Country: None (occurrence: None)
  Receive Date: 20041122
  Receipt Date: 20041108
  Transmission Date: 20050328
  Serious: Yes (Hospitalization)
  Sender: FDA-Public Use
  Company Number: 2003019739

PATIENT
  Age: 29 Year
  Sex: Male

DRUGS (3)
  1. SILDENAFIL (SILDENAFIL) [Suspect]
     Indication: ERECTILE DYSFUNCTION
     Dosage: 100 MG, ORAL
     Route: 048
     Dates: start: 20030407
  2. BACLOFEN [Concomitant]
  3. OXYBUTYNIN CHLORIDE [Concomitant]

REACTIONS (4)
  - CATHETER RELATED COMPLICATION [None]
  - INJURY [None]
  - MUCOSAL EROSION [None]
  - URETHRAL HAEMORRHAGE [None]
